FAERS Safety Report 7756562-X (Version None)
Quarter: 2011Q3

REPORT INFORMATION
  Report Type: 
  Country: None (occurrence: None)
  Receive Date: 20110916
  Receipt Date: 20110907
  Transmission Date: 20111222
  Serious: Yes (Other)
  Sender: FDA-Public Use
  Company Number: JP-JNJFOC-20110905173

PATIENT
  Age: 72 Year
  Sex: Male

DRUGS (2)
  1. REMICADE [Suspect]
     Indication: PRODUCT USED FOR UNKNOWN INDICATION
     Route: 042
     Dates: start: 20110811
  2. REMICADE [Suspect]
     Route: 042
     Dates: start: 20110630

REACTIONS (3)
  - PO2 DECREASED [None]
  - PYREXIA [None]
  - CHEST X-RAY ABNORMAL [None]
